FAERS Safety Report 7574943-4 (Version None)
Quarter: 2011Q2

REPORT INFORMATION
  Report Type: 
  Country: None (occurrence: None)
  Receive Date: 20110627
  Receipt Date: 20110614
  Transmission Date: 20111010
  Serious: Yes (Hospitalization)
  Sender: FDA-Public Use
  Company Number: JP-ELI_LILLY_AND_COMPANY-JP201105007123

PATIENT
  Sex: Female
  Weight: 43.9 kg

DRUGS (9)
  1. HEPARIN [Concomitant]
     Indication: ATRIAL FIBRILLATION
     Dosage: UNK
     Dates: start: 20110523, end: 20110525
  2. MARZULENE S [Concomitant]
     Indication: PROPHYLAXIS
     Dosage: 0.5 G, BID
     Route: 048
     Dates: start: 20100623, end: 20110523
  3. PREDNISOLONE [Concomitant]
     Indication: GOUT
     Dosage: 5 MG, QD
     Route: 048
     Dates: start: 20100628
  4. EVISTA [Suspect]
     Indication: OSTEOPOROSIS
     Dosage: 60 MG, QD
     Route: 048
     Dates: start: 20110419, end: 20110426
  5. URINORM [Concomitant]
     Indication: GOUT
     Dosage: 25 MG, QD
     Route: 048
     Dates: start: 20100726, end: 20110523
  6. VERAPAMIL HCL [Concomitant]
     Indication: ATRIAL FIBRILLATION
     Dosage: 40 MG, TID
     Route: 048
     Dates: start: 20100827
  7. FAMOTIDINE [Concomitant]
     Indication: GASTRIC ULCER
     Dosage: 20 MG, QD
     Route: 048
     Dates: start: 20100829
  8. CARVEDILOL [Concomitant]
  9. LOXONIN [Concomitant]

REACTIONS (5)
  - DYSPNOEA [None]
  - DISSEMINATED INTRAVASCULAR COAGULATION [None]
  - HEPATIC FUNCTION ABNORMAL [None]
  - PLEURAL EFFUSION [None]
  - CARDIOMEGALY [None]
